FAERS Safety Report 20827814 (Version 1)
Quarter: 2022Q2

REPORT INFORMATION
  Report Type: Spontaneous
  Country: US (occurrence: None)
  Receive Date: 20220513
  Receipt Date: 20220513
  Transmission Date: 20220721
  Serious: Yes (Hospitalization)
  Sender: FDA-Public Use
  Company Number: None

PATIENT
  Age: 43 Year
  Sex: Male
  Weight: 90.9 kg

DRUGS (11)
  1. TOPIRAMATE [Suspect]
     Active Substance: TOPIRAMATE
     Indication: Migraine prophylaxis
     Dosage: FREQUENCY : EVERY 12 HOURS;?
     Route: 048
     Dates: start: 20220317, end: 20220513
  2. TOPIRAMATE [Suspect]
     Active Substance: TOPIRAMATE
     Indication: Craniocerebral injury
  3. TOPAMAX [Concomitant]
     Active Substance: TOPIRAMATE
  4. DICLOFENAC [Concomitant]
     Active Substance: DICLOFENAC
  5. SUMATRIPTAN [Concomitant]
     Active Substance: SUMATRIPTAN
  6. TIZANIDINE [Concomitant]
     Active Substance: TIZANIDINE
  7. Melatonine with CBD [Concomitant]
  8. multi vitamin [Concomitant]
  9. VITAMIN D [Concomitant]
     Active Substance: VITAMIN D NOS
  10. MAGNESIUM [Concomitant]
     Active Substance: MAGNESIUM
  11. FISH OIL [Concomitant]
     Active Substance: FISH OIL

REACTIONS (3)
  - Muscular weakness [None]
  - Muscle disorder [None]
  - Confusional state [None]

NARRATIVE: CASE EVENT DATE: 20220430
